FAERS Safety Report 16792292 (Version 2)
Quarter: 2019Q3

REPORT INFORMATION
  Report Type: Report from Study
  Country: IL (occurrence: IL)
  Receive Date: 20190910
  Receipt Date: 20190927
  Transmission Date: 20191005
  Serious: Yes (Other)
  Sender: FDA-Public Use
  Company Number: IL-TEVA-2019-IL-1105098

PATIENT
  Age: 58 Year
  Sex: Female

DRUGS (1)
  1. ZOLEDRONIC ACID [Suspect]
     Active Substance: ZOLEDRONIC ACID
     Indication: THYROID CANCER METASTATIC
     Route: 042

REACTIONS (3)
  - Parophthalmia [Recovered/Resolved]
  - Iridocyclitis [Recovered/Resolved]
  - Scleritis [Recovered/Resolved]
